FAERS Safety Report 6011354-7 (Version None)
Quarter: 2008Q4

REPORT INFORMATION
  Report Type: 
  Country: None (occurrence: None)
  Receive Date: 20081218
  Receipt Date: 20081128
  Transmission Date: 20090506
  Serious: Yes (Other)
  Sender: FDA-Public Use
  Company Number: BR-PFIZER INC-2008150861

PATIENT

DRUGS (4)
  1. CELEBRA [Suspect]
     Indication: PAIN
     Dosage: 200 MG, AS NEEDED
     Route: 048
     Dates: start: 20080801
  2. CENTRUM [Concomitant]
     Dosage: UNK
     Route: 065
  3. ARTRODAR [Concomitant]
     Dosage: UNK
     Route: 065
  4. GINKGO BILOBA [Concomitant]
     Dosage: UNK
     Route: 065

REACTIONS (2)
  - SKIN DISORDER [None]
  - VARICOSE VEIN [None]
